FAERS Safety Report 20759250 (Version 1)
Quarter: 2022Q2

REPORT INFORMATION
  Report Type: Spontaneous
  Country: US (occurrence: US)
  Receive Date: 20220427
  Receipt Date: 20220427
  Transmission Date: 20220720
  Serious: No
  Sender: FDA-Public Use
  Company Number: US-BioHaven Pharmaceuticals-2022BHV000072

PATIENT
  Age: 75 Year
  Sex: Male

DRUGS (1)
  1. NURTEC ODT [Suspect]
     Active Substance: RIMEGEPANT SULFATE
     Indication: Prophylaxis
     Dosage: PATIENT FIRST FILLED THEIR NURTEC PRESCRIPTION ON 27SEP2021 AND WAS TAKING IT FOR ALMOST 3 MONTHS.
     Route: 065
     Dates: start: 2021

REACTIONS (1)
  - Drug ineffective [Not Recovered/Not Resolved]
